FAERS Safety Report 5952673-X (Version None)
Quarter: 2008Q4

REPORT INFORMATION
  Report Type: 
  Country: None (occurrence: None)
  Receive Date: 20081113
  Receipt Date: 20081111
  Transmission Date: 20090506
  Serious: Yes (Life-Threatening, Hospitalization, Disabling)
  Sender: FDA-Public Use
  Company Number: CZ-SANOFI-SYNTHELABO-F01200801706

PATIENT
  Sex: Male

DRUGS (4)
  1. CAPECITABINE [Suspect]
     Dosage: UNK
     Route: 065
     Dates: start: 20080915
  2. FLUOROURACIL [Suspect]
     Dosage: UNK
     Route: 065
     Dates: start: 20080915
  3. BEVACIZUMAB [Suspect]
     Route: 065
     Dates: start: 20080915, end: 20080915
  4. OXALIPLATIN [Suspect]
     Indication: COLORECTAL CANCER
     Dosage: UNK
     Route: 065
     Dates: start: 20080915, end: 20080915

REACTIONS (3)
  - ARRHYTHMIA [None]
  - ATRIAL FIBRILLATION [None]
  - HYPOXIA [None]
